FAERS Safety Report 13080062 (Version 1)
Quarter: 2017Q1

REPORT INFORMATION
  Report Type: Spontaneous
  Country: US (occurrence: US)
  Receive Date: 20170103
  Receipt Date: 20170103
  Transmission Date: 20170428
  Serious: No
  Sender: FDA-Public Use
  Company Number: US-AMGEN-USASP2016182153

PATIENT
  Age: 70 Year
  Sex: Female

DRUGS (11)
  1. GLIPIZIDE. [Concomitant]
     Active Substance: GLIPIZIDE
     Dosage: 10 MG, UNK
  2. METFORMIN [Concomitant]
     Active Substance: METFORMIN HYDROCHLORIDE
     Dosage: 1000 MG, UNK
  3. METFORMIN [Concomitant]
     Active Substance: METFORMIN HYDROCHLORIDE
     Dosage: 500 UNK, UNK
  4. ENBREL [Suspect]
     Active Substance: ETANERCEPT
     Indication: TYPE 2 DIABETES MELLITUS
     Dosage: 25 MG, 2 TIMES/WK
     Route: 058
     Dates: start: 201605, end: 20161025
  5. ENBREL [Suspect]
     Active Substance: ETANERCEPT
     Dosage: 25 MG, 2 TIMES/WK
     Route: 058
     Dates: start: 20161213
  6. CIPRO HC [Concomitant]
     Active Substance: CIPROFLOXACIN HYDROCHLORIDE\HYDROCORTISONE
     Dosage: SUS OTIC
  7. PREDNISONE. [Concomitant]
     Active Substance: PREDNISONE
     Dosage: 10 MG, UNK
  8. CALCIUM [Concomitant]
     Active Substance: CALCIUM
     Dosage: 600 MG, UNK
  9. PRAVASTATIN. [Concomitant]
     Active Substance: PRAVASTATIN
     Dosage: 2 MG, UNK
  10. METHOTREXATE. [Concomitant]
     Active Substance: METHOTREXATE
     Dosage: UNK, 100/4ML
  11. INVOKANA [Concomitant]
     Active Substance: CANAGLIFLOZIN
     Dosage: 100 MG, UNK

REACTIONS (5)
  - Arthropod bite [Recovered/Resolved]
  - Off label use [Unknown]
  - Upper respiratory tract infection [Recovered/Resolved]
  - Infection [Recovered/Resolved]
  - Eye infection [Recovered/Resolved]

NARRATIVE: CASE EVENT DATE: 2016
